FAERS Safety Report 10218234 (Version 1)
Quarter: 2014Q2

REPORT INFORMATION
  Report Type: Spontaneous
  Country: BR (occurrence: BR)
  Receive Date: 20140605
  Receipt Date: 20140605
  Transmission Date: 20141212
  Serious: Yes (Hospitalization, Other)
  Sender: FDA-Public Use
  Company Number: BR-AMGEN INC.-BRASP2014041530

PATIENT
  Age: 36 Year
  Sex: Female
  Weight: 42 kg

DRUGS (1)
  1. ENBREL [Suspect]
     Indication: RHEUMATOID ARTHRITIS
     Dosage: 50 MG, ONCE A WEEK
     Route: 058

REACTIONS (2)
  - Cardiac tamponade [Unknown]
  - Pericarditis [Unknown]
